FAERS Safety Report 9374159 (Version 1)
Quarter: 2013Q2

REPORT INFORMATION
  Report Type: Spontaneous
  Country: US (occurrence: US)
  Receive Date: 20130628
  Receipt Date: 20130628
  Transmission Date: 20140414
  Serious: No
  Sender: FDA-Public Use
  Company Number: US-BIOGENIDEC-2013BI056475

PATIENT
  Sex: Female

DRUGS (1)
  1. AVONEX [Suspect]
     Indication: MULTIPLE SCLEROSIS
     Route: 030
     Dates: start: 20040615

REACTIONS (6)
  - Memory impairment [Unknown]
  - Fear of injection [Unknown]
  - Frustration [Unknown]
  - Road traffic accident [Unknown]
  - Fatigue [Recovered/Resolved with Sequelae]
  - Pain in extremity [Unknown]
